FAERS Safety Report 22396752 (Version 1)
Quarter: 2023Q2

REPORT INFORMATION
  Report Type: Spontaneous
  Country: US (occurrence: US)
  Receive Date: 20230601
  Receipt Date: 20230601
  Transmission Date: 20230722
  Serious: No
  Sender: FDA-Public Use
  Company Number: US-APIL-2316079US

PATIENT
  Age: 63 Year
  Sex: Male

DRUGS (2)
  1. VIBERZI [Suspect]
     Active Substance: ELUXADOLINE
     Dosage: 100 MILLIGRAM
  2. AUBAGIO [Suspect]
     Active Substance: TERIFLUNOMIDE
     Indication: Multiple sclerosis
     Dosage: 14 MILLIGRAM
     Route: 048

REACTIONS (5)
  - Asthenia [Unknown]
  - Fatigue [Unknown]
  - Headache [None]
  - Migraine [None]
  - COVID-19 [Unknown]
